FAERS Safety Report 25716821 (Version 1)
Quarter: 2025Q3

REPORT INFORMATION
  Report Type: Spontaneous
  Country: EU (occurrence: EU)
  Receive Date: 20250822
  Receipt Date: 20250822
  Transmission Date: 20251021
  Serious: Yes (Hospitalization)
  Sender: TEVA
  Company Number: None

PATIENT
  Age: 67 Year
  Sex: Male
  Weight: 92.8 kg

DRUGS (5)
  1. FLUCONAZOLE [Suspect]
     Active Substance: FLUCONAZOLE
     Indication: Mucocutaneous candidiasis
     Dosage: 1 TIME PER DAY
     Route: 048
     Dates: start: 20250207, end: 20250221
  2. CASPOFUNGIN [Suspect]
     Active Substance: CASPOFUNGIN
     Indication: Infection
     Dosage: 50 MG/DAY, CASPOFUNGIN BASE
     Route: 042
     Dates: start: 20250204, end: 20250206
  3. TEICOPLANIN [Suspect]
     Active Substance: TEICOPLANIN
     Indication: Infection
     Dosage: 6 MG/KG EVERY 12 HOURS
     Route: 042
     Dates: start: 20250127, end: 20250210
  4. TEICOPLANIN [Suspect]
     Active Substance: TEICOPLANIN
     Indication: Infection
     Route: 042
     Dates: start: 20250121, end: 20250123
  5. CEFOTAXIME [Suspect]
     Active Substance: CEFOTAXIME SODIUM
     Indication: Infection
     Dosage: 2 G / DAY, CEFOTAXIME BASE
     Route: 042
     Dates: start: 20250208, end: 20250220

REACTIONS (1)
  - Rash maculo-papular [Recovered/Resolved]

NARRATIVE: CASE EVENT DATE: 20250219
